FAERS Safety Report 12742897 (Version 1)
Quarter: 2016Q3

REPORT INFORMATION
  Report Type: Spontaneous
  Country: US (occurrence: US)
  Receive Date: 20160914
  Receipt Date: 20160914
  Transmission Date: 20161109
  Serious: Yes (Disabling)
  Sender: FDA-Public Use
  Company Number: None

PATIENT
  Age: 52 Year
  Sex: Female
  Weight: 77.4 kg

DRUGS (11)
  1. MAGNESIUM [Concomitant]
     Active Substance: MAGNESIUM
  2. MUCINEX [Concomitant]
     Active Substance: GUAIFENESIN
  3. PROBIOTIC [Concomitant]
     Active Substance: PROBIOTICS NOS
  4. SIMVASTATIN. [Concomitant]
     Active Substance: SIMVASTATIN
  5. COMPAZINE [Suspect]
     Active Substance: PROCHLORPERAZINE MALEATE
     Indication: HEADACHE
     Route: 042
     Dates: start: 20160911, end: 20160911
  6. LEVOTHYROXIN [Concomitant]
     Active Substance: LEVOTHYROXINE
  7. VITAMINS [Concomitant]
     Active Substance: VITAMINS
  8. SINGULAIR [Concomitant]
     Active Substance: MONTELUKAST SODIUM
  9. ZOLOFT [Concomitant]
     Active Substance: SERTRALINE HYDROCHLORIDE
  10. BIOTIN [Concomitant]
     Active Substance: BIOTIN
  11. ZYRTEC [Concomitant]
     Active Substance: CETIRIZINE HYDROCHLORIDE

REACTIONS (5)
  - Swelling face [None]
  - Chest discomfort [None]
  - Dyspnoea [None]
  - Panic reaction [None]
  - Contraindicated product administered [None]

NARRATIVE: CASE EVENT DATE: 20160911
